FAERS Safety Report 6510997-1 (Version None)
Quarter: 2009Q4

REPORT INFORMATION
  Report Type: 
  Country: None (occurrence: None)
  Receive Date: 20091222
  Receipt Date: 20090211
  Transmission Date: 20100525
  Serious: No
  Sender: FDA-Public Use
  Company Number: US-ASTRAZENECA-2009UW04063

PATIENT
  Age: 82 Year
  Sex: Female

DRUGS (3)
  1. CRESTOR [Suspect]
     Route: 048
  2. AVAPRO [Concomitant]
  3. ASPIRIN [Concomitant]

REACTIONS (2)
  - OEDEMA PERIPHERAL [None]
  - PRURITUS [None]
